FAERS Safety Report 12047820 (Version 5)
Quarter: 2016Q2

REPORT INFORMATION
  Report Type: Spontaneous
  Country: US (occurrence: US)
  Receive Date: 20160208
  Receipt Date: 20160405
  Transmission Date: 20160815
  Serious: Yes (Hospitalization)
  Sender: FDA-Public Use
  Company Number: US-TEVA-633637USA

PATIENT
  Age: 78 Year
  Sex: Male

DRUGS (8)
  1. CAPECITABINE. [Interacting]
     Active Substance: CAPECITABINE
     Indication: SQUAMOUS CELL CARCINOMA
     Dosage: ON ALTERNATE WEEKS
     Route: 048
  2. SIMVASTATIN. [Interacting]
     Active Substance: SIMVASTATIN
     Route: 065
  3. FLUDARABINE [Suspect]
     Active Substance: FLUDARABINE PHOSPHATE
     Indication: CHRONIC LYMPHOCYTIC LEUKAEMIA
     Dosage: 6 CYCLES
     Route: 065
  4. ACICLOVIR [Concomitant]
     Active Substance: ACYCLOVIR
  5. CYCLOPHOSPHAMIDE. [Suspect]
     Active Substance: CYCLOPHOSPHAMIDE
     Indication: CHRONIC LYMPHOCYTIC LEUKAEMIA
     Dosage: 6 CYCLES
     Route: 065
  6. ESOMEPRAZOLE [Interacting]
     Active Substance: ESOMEPRAZOLE
     Route: 065
  7. PAROXETINE. [Interacting]
     Active Substance: PAROXETINE
     Route: 065
  8. RITUXIMAB [Concomitant]
     Active Substance: RITUXIMAB

REACTIONS (4)
  - Drug interaction [Unknown]
  - False negative investigation result [Unknown]
  - Off label use [Unknown]
  - Meningitis cryptococcal [Not Recovered/Not Resolved]
